FAERS Safety Report 7225434-1 (Version None)
Quarter: 2011Q1

REPORT INFORMATION
  Report Type: 
  Country: None (occurrence: None)
  Receive Date: 20110103
  Receipt Date: 20101220
  Transmission Date: 20110831
  Serious: Yes (Disabling, Other)
  Sender: FDA-Public Use
  Company Number: 2010P1003499

PATIENT
  Sex: Female

DRUGS (1)
  1. METOCLOPRAMIDE [Suspect]
     Indication: REFLUX GASTRITIS
     Dosage: ;PO
     Route: 048
     Dates: start: 20050601, end: 20090901

REACTIONS (12)
  - TARDIVE DYSKINESIA [None]
  - ECONOMIC PROBLEM [None]
  - MULTIPLE INJURIES [None]
  - MENTAL DISORDER [None]
  - ACTIVITIES OF DAILY LIVING IMPAIRED [None]
  - QUALITY OF LIFE DECREASED [None]
  - DEFORMITY [None]
  - NERVOUS SYSTEM DISORDER [None]
  - EXTRAPYRAMIDAL DISORDER [None]
  - MOVEMENT DISORDER [None]
  - PAIN [None]
  - UNEVALUABLE EVENT [None]
